FAERS Safety Report 20911439 (Version 4)
Quarter: 2022Q3

REPORT INFORMATION
  Report Type: Other
  Country: IN (occurrence: None)
  Receive Date: 20220603
  Receipt Date: 20220804
  Transmission Date: 20221026
  Serious: Yes (Hospitalization, Other)
  Sender: FDA-Public Use
  Company Number: IN-ROCHE-3107864

PATIENT
  Age: 70 Year
  Sex: Female

DRUGS (1)
  1. KADCYLA [Suspect]
     Active Substance: ADO-TRASTUZUMAB EMTANSINE
     Indication: Breast cancer metastatic
     Route: 042
     Dates: start: 20220101

REACTIONS (3)
  - Breast cancer metastatic [Unknown]
  - Seizure [Unknown]
  - Metastases to central nervous system [Unknown]

NARRATIVE: CASE EVENT DATE: 20220607
